FAERS Safety Report 9254927 (Version 1)
Quarter: 2013Q2

REPORT INFORMATION
  Report Type: Spontaneous
  Country: US (occurrence: None)
  Receive Date: 20130423
  Receipt Date: 20130423
  Transmission Date: 20140414
  Serious: Yes (Other)
  Sender: FDA-Public Use
  Company Number: None

PATIENT
  Age: 62 Year
  Sex: Female

DRUGS (1)
  1. STIVARGA [Suspect]
     Route: 048
     Dates: start: 201211, end: 201302

REACTIONS (2)
  - Drug ineffective [None]
  - Decreased appetite [None]
